FAERS Safety Report 22629703 (Version 1)
Quarter: 2023Q2

REPORT INFORMATION
  Report Type: Spontaneous
  Country: US (occurrence: None)
  Receive Date: 20230622
  Receipt Date: 20230622
  Transmission Date: 20230722
  Serious: Yes (Hospitalization)
  Sender: FDA-Public Use
  Company Number: 2023A140725

PATIENT
  Sex: Male
  Weight: 89.8 kg

DRUGS (26)
  1. CALQUENCE [Suspect]
     Active Substance: ACALABRUTINIB
     Indication: Chronic lymphocytic leukaemia (in remission)
     Route: 048
  2. ALDARA [Concomitant]
     Active Substance: IMIQUIMOD
  3. ALLOPURINOL [Concomitant]
     Active Substance: ALLOPURINOL
  4. VITAMIN B COMPLEX+VITAMIN C [Concomitant]
  5. BENAZEPRIL [Concomitant]
     Active Substance: BENAZEPRIL HYDROCHLORIDE
  6. CARAFATE [Concomitant]
     Active Substance: SUCRALFATE
  7. CEFDINIR [Concomitant]
     Active Substance: CEFDINIR
  8. CEPHALEXIN [Concomitant]
     Active Substance: CEPHALEXIN
  9. COLACE [Concomitant]
     Active Substance: DOCUSATE SODIUM
  10. COENZYME Q10 [Concomitant]
     Active Substance: DIETARY SUPPLEMENT\UBIDECARENONE
  11. ELIQUIS [Concomitant]
     Active Substance: APIXABAN
  12. FLOMAX [Concomitant]
     Active Substance: TAMSULOSIN HYDROCHLORIDE
  13. FUROSEMIDE [Concomitant]
     Active Substance: FUROSEMIDE
  14. HYDRO CHLOROTHIAZIDE [Concomitant]
  15. IMODIUM A-D [Concomitant]
     Active Substance: LOPERAMIDE HYDROCHLORIDE
  16. METOPROLOL [Concomitant]
     Active Substance: METOPROLOL
  17. MUCINEX [Concomitant]
     Active Substance: GUAIFENESIN
  18. NEBIVOLOL [Concomitant]
     Active Substance: NEBIVOLOL
  19. PEPTO-BISMOL [Concomitant]
     Active Substance: BISMUTH SUBSALICYLATE
  20. PRADAXA [Concomitant]
     Active Substance: DABIGATRAN ETEXILATE MESYLATE
  21. PROTONIX [Concomitant]
     Active Substance: PANTOPRAZOLE SODIUM
  22. MAGNESIUM [Concomitant]
     Active Substance: MAGNESIUM
  23. THE ORIGINAL NATURAL HERB COUGH DROPS [Concomitant]
     Active Substance: MENTHOL
  24. ROCEPHIN [Concomitant]
     Active Substance: CEFTRIAXONE SODIUM
  25. SIMVASTATIN [Concomitant]
     Active Substance: SIMVASTATIN
  26. TIMOLOL MALEATE [Concomitant]
     Active Substance: TIMOLOL MALEATE

REACTIONS (1)
  - Pleural effusion [Recovering/Resolving]
